FAERS Safety Report 18737324 (Version 2)
Quarter: 2021Q1

REPORT INFORMATION
  Report Type: Other
  Country: US (occurrence: US)
  Receive Date: 20210113
  Receipt Date: 20210218
  Transmission Date: 20210419
  Serious: Yes (Hospitalization)
  Sender: FDA-Public Use
  Company Number: US-NEUROCRINE BIOSCIENCES INC.-2021NBI00066

PATIENT
  Age: 64 Year
  Sex: Male

DRUGS (2)
  1. INGREZZA [Suspect]
     Active Substance: VALBENAZINE
     Route: 048
     Dates: start: 20190215
  2. INGREZZA [Suspect]
     Active Substance: VALBENAZINE
     Indication: TARDIVE DYSKINESIA
     Route: 048
     Dates: start: 20190207, end: 20190214

REACTIONS (5)
  - Muscular weakness [Unknown]
  - Dehydration [Unknown]
  - Syncope [Recovered/Resolved]
  - COVID-19 [Unknown]
  - Decubitus ulcer [Unknown]
